FAERS Safety Report 5537676-1 (Version None)
Quarter: 2007Q4

REPORT INFORMATION
  Report Type: 
  Country: None (occurrence: None)
  Receive Date: 20071207
  Receipt Date: 20071114
  Transmission Date: 20080405
  Serious: Yes (Death, Life-Threatening, Hospitalization)
  Sender: FDA-Public Use
  Company Number: BR-ROCHE-526460

PATIENT
  Age: 63 Year
  Sex: Female
  Weight: 70 kg

DRUGS (3)
  1. CAPECITABINE [Suspect]
     Dosage: 2500 MG, UNK
     Route: 065
     Dates: start: 20070201
  2. BLINDED BEVACIZUMAB [Suspect]
     Dosage: 1080 MG, Q3W
     Route: 065
     Dates: start: 20070201
  3. BLINDED PLACEBO [Suspect]
     Dosage: 1080 MG, Q3W
     Route: 065
     Dates: start: 20070201

REACTIONS (1)
  - RESPIRATORY FAILURE [None]
